FAERS Safety Report 25174431 (Version 1)
Quarter: 2025Q2

REPORT INFORMATION
  Report Type: Spontaneous
  Country: CN (occurrence: CN)
  Receive Date: 20250408
  Receipt Date: 20250408
  Transmission Date: 20250716
  Serious: Yes (Other)
  Sender: PFIZER
  Company Number: CN-PFIZER INC-PV202500039696

PATIENT
  Age: 75 Year
  Sex: Female
  Weight: 59 kg

DRUGS (7)
  1. NIRMATRELVIR\RITONAVIR [Suspect]
     Active Substance: NIRMATRELVIR\RITONAVIR
     Indication: COVID-19 treatment
     Dosage: [NIRMATRELVIR 300 MG]/[RITONAVIR 100 MG]; 2X/DAY
     Route: 048
     Dates: start: 20240620, end: 20240625
  2. SULFAMETHOXAZOLE [Suspect]
     Active Substance: SULFAMETHOXAZOLE
     Indication: Pneumonia
     Dosage: 1 DF, 1X/DAY
     Route: 048
     Dates: start: 20240620, end: 20240627
  3. ENOXAPARIN SODIUM [Suspect]
     Active Substance: ENOXAPARIN SODIUM
     Indication: Plasma cell myeloma
     Dosage: 3075 IU, 1X/DAY
     Route: 058
     Dates: start: 20240620, end: 20240627
  4. ENTECAVIR [Concomitant]
     Active Substance: ENTECAVIR
     Indication: Antiviral prophylaxis
     Dosage: 0.5 MG, 1X/DAY
     Route: 048
     Dates: start: 20240620
  5. AMMONIUM GLYCYRRHIZATE\CYSTEINE HYDROCHLORIDE\GLYCINE [Concomitant]
     Active Substance: AMMONIUM GLYCYRRHIZATE\CYSTEINE HYDROCHLORIDE\GLYCINE
     Dates: start: 20240621, end: 20240623
  6. PHOSPHOLIPID [Concomitant]
     Active Substance: PHOSPHOLIPID
     Dates: start: 20240621
  7. HUMAN IMMUNOGLOBULIN G [Concomitant]
     Active Substance: HUMAN IMMUNOGLOBULIN G
     Route: 042
     Dates: start: 20240621

REACTIONS (3)
  - Acute hepatic failure [Recovered/Resolved]
  - Hepatic function abnormal [Recovered/Resolved]
  - Drug-induced liver injury [Recovered/Resolved]

NARRATIVE: CASE EVENT DATE: 20240623
